FAERS Safety Report 9222610 (Version 1)
Quarter: 2013Q1

REPORT INFORMATION
  Report Type: Spontaneous
  Country: US (occurrence: None)
  Receive Date: 20120912
  Receipt Date: 20120912
  Transmission Date: 20140127
  Serious: No
  Sender: FDA-Public Use
  Company Number: 2012SP032030

PATIENT
  Age: 61 Year
  Sex: Male

DRUGS (4)
  1. VICTRELIS 200 MG [Suspect]
     Indication: HEPATITIS C
     Route: 048
     Dates: start: 201201, end: 201205
  2. PEGINTRON [Suspect]
  3. BENICAR [Concomitant]
  4. BYSTOLIC [Concomitant]

REACTIONS (4)
  - Thyroid function test abnormal [None]
  - Glomerular filtration rate decreased [None]
  - Anxiety [None]
  - Therapeutic product ineffective [None]
